FAERS Safety Report 8838197 (Version 1)
Quarter: 2012Q4

REPORT INFORMATION
  Report Type: Spontaneous
  Country: US (occurrence: None)
  Receive Date: 20121011
  Receipt Date: 20121011
  Transmission Date: 20130627
  Serious: Yes (Hospitalization, Other)
  Sender: FDA-Public Use
  Company Number: None

PATIENT
  Age: 40 Year
  Sex: Female
  Weight: 104.33 kg

DRUGS (2)
  1. ADVAIR [Suspect]
     Indication: ASTHMA
     Dosage: 1 puff every day other
  2. ADVAIR [Suspect]

REACTIONS (8)
  - Asthenia [None]
  - Bone pain [None]
  - Joint swelling [None]
  - Oedema peripheral [None]
  - Cardiovascular disorder [None]
  - Contusion [None]
  - Asthma [None]
  - Tremor [None]
